FAERS Safety Report 10367546 (Version 1)
Quarter: 2014Q3

REPORT INFORMATION
  Report Type: Spontaneous
  Country: GB (occurrence: None)
  Receive Date: 20140805
  Receipt Date: 20140805
  Transmission Date: 20150326
  Serious: Yes (Hospitalization)
  Sender: FDA-Public Use
  Company Number: 1081999

PATIENT
  Age: 81 Year
  Sex: Male
  Weight: 107 kg

DRUGS (5)
  1. (CISPLATIN) [Suspect]
     Active Substance: CISPLATIN
     Indication: NON-HODGKIN^S LYMPHOMA
     Dosage: 165 MG MILLIGRAM (S) 1 WEEK, INTRAVENOUS (NOT SPECIFIED)
     Route: 042
     Dates: start: 20110901
  2. DEXAMETHASONE ACETATE [Suspect]
     Active Substance: DEXAMETHASONE ACETATE
     Indication: NON-HODGKIN^S LYMPHOMA
     Dosage: 40 MG MILLIGRAM(S), 1 WEEK, ORAL
     Route: 048
     Dates: start: 20110901
  3. INOTUZUMAB OZOGAMICIN [Suspect]
     Active Substance: INOTUZUMAB OZOGAMICIN
     Indication: NON-HODGKIN^S LYMPHOMA
     Dosage: 1.8 MG MILLIGRAM(S), 1 WEEK, INTRAVENOUS (NOT OTHERWISE SPECIFIED)?
     Route: 042
     Dates: start: 20110902
  4. RITUXIMAB [Suspect]
     Active Substance: RITUXIMAB
     Indication: NON-HODGKIN^S LYMPHOMA
     Dosage: 830 MG MILLIGRAM(S), 1 WEEK, INTRAVENOUS (NOT OTHERWISE SPECIFIED)?
     Route: 042
     Dates: start: 20110901
  5. (GEMCITABINE HYDROCHLORIDE) [Suspect]
     Active Substance: GEMCITABINE HYDROCHLORIDE
     Indication: NON-HODGKIN^S LYMPHOMA
     Dosage: 1100 MG MILLIGRAM(S), 1 WEEK, INTRAVENOUS (NOT OTHERWISE SPECIFIED)?
     Route: 042
     Dates: start: 20110902

REACTIONS (2)
  - Pneumonia [None]
  - Neutropenic sepsis [None]

NARRATIVE: CASE EVENT DATE: 20110914
